APPROVED DRUG PRODUCT: TENOFOVIR DISOPROXIL FUMARATE
Active Ingredient: TENOFOVIR DISOPROXIL FUMARATE
Strength: 200MG
Dosage Form/Route: TABLET;ORAL
Application: A090647 | Product #002 | TE Code: AB
Applicant: AUROBINDO PHARMA LTD
Approved: Jan 26, 2018 | RLD: No | RS: No | Type: RX